FAERS Safety Report 8589863-6 (Version None)
Quarter: 2012Q3

REPORT INFORMATION
  Report Type: 
  Country: None (occurrence: None)
  Receive Date: 20120813
  Receipt Date: 20120808
  Transmission Date: 20120928
  Serious: Yes (Death, Life-Threatening)
  Sender: FDA-Public Use
  Company Number: JP-AMGEN-JPNSP2011054710

PATIENT
  Age: 79 Year
  Sex: Female
  Weight: 53 kg

DRUGS (10)
  1. ROMIPLOSTIM [Suspect]
     Indication: IDIOPATHIC THROMBOCYTOPENIC PURPURA
     Dosage: 1 MUG/KG, QWK
     Route: 058
     Dates: start: 20110826
  2. PREDNISOLONE [Concomitant]
     Route: 048
     Dates: start: 20110729, end: 20110903
  3. SOLU-CORTEF [Concomitant]
     Indication: IDIOPATHIC THROMBOCYTOPENIC PURPURA
     Dosage: 100 G, UNK
     Route: 041
     Dates: start: 20110729, end: 20110911
  4. OMEPRAZOLE [Concomitant]
     Indication: PROPHYLAXIS
     Dosage: UNCERTAINTY
     Route: 065
  5. ZOSYN [Concomitant]
     Indication: INFECTION
     Dosage: UNCERTAINTY
     Route: 042
  6. METHYLPREDNISOLONE SODIUM SUCCINATE [Concomitant]
     Indication: IDIOPATHIC THROMBOCYTOPENIC PURPURA
     Dosage: 40 MG, QD
     Route: 041
     Dates: start: 20110729, end: 20110904
  7. PENTAMIDINE ISETHIONATE [Concomitant]
     Indication: PROPHYLAXIS
     Dosage: UNCERTAINTY
     Route: 042
  8. ALBUMIN (HUMAN) [Concomitant]
     Indication: PLEURAL EFFUSION
     Dosage: UNCERTAINTY
     Route: 042
  9. ROMIPLOSTIM [Suspect]
     Dosage: 1 MUG/KG, QWK
     Route: 058
     Dates: start: 20110902, end: 20110902
  10. PREDNISOLONE [Concomitant]
     Indication: IDIOPATHIC THROMBOCYTOPENIC PURPURA
     Dosage: 5 MG/KG, UNK
     Route: 048
     Dates: start: 20110729, end: 20110911

REACTIONS (3)
  - ASTHMA [None]
  - CARDIAC FAILURE [None]
  - PLEURAL EFFUSION [None]
